FAERS Safety Report 5292003-2 (Version None)
Quarter: 2007Q2

REPORT INFORMATION
  Report Type: 
  Country: None (occurrence: None)
  Receive Date: 20070406
  Receipt Date: 20070406
  Transmission Date: 20071010
  Serious: Yes (Life-Threatening, Hospitalization, Other)
  Sender: FDA-Public Use
  Company Number: None

PATIENT
  Age: 34 Year
  Sex: Female
  Weight: 74.8435 kg

DRUGS (2)
  1. TOPIRAMATE [Suspect]
     Indication: MIGRAINE
     Dosage: 75 MG   BID   PO
     Route: 048
     Dates: start: 20030501, end: 20040601
  2. TOPIRAMATE [Suspect]
     Dosage: 75 MG  BID  PO
     Route: 048
     Dates: start: 20050825, end: 20051103

REACTIONS (1)
  - STEVENS-JOHNSON SYNDROME [None]
